FAERS Safety Report 6305550-9 (Version None)
Quarter: 2009Q3

REPORT INFORMATION
  Report Type: 
  Country: None (occurrence: None)
  Receive Date: 20090807
  Receipt Date: 20090730
  Transmission Date: 20100115
  Serious: Yes (Other)
  Sender: FDA-Public Use
  Company Number: TCI2009A03059

PATIENT
  Age: 68 Year
  Sex: Male

DRUGS (7)
  1. ACTOS [Suspect]
     Indication: TYPE 2 DIABETES MELLITUS
     Dosage: 30 MG (30 MG, 1 D) PER ORAL
     Route: 048
     Dates: start: 20080208, end: 20080618
  2. ALPHA GLUCOSIDASE INHIBITORS [Concomitant]
  3. SULFONAMIDES, UREA DERIVATIVES [Concomitant]
  4. INSULINS AND ANALOGUES [Concomitant]
  5. CALCIUM CHANNEL BLOCKERS [Concomitant]
  6. ACE INHIBITOR NOS [Concomitant]
  7. HMG COA REDUCTASE INHIBITORS [Concomitant]

REACTIONS (1)
  - LIVER DISORDER [None]
